FAERS Safety Report 12738796 (Version 1)
Quarter: 2016Q3

REPORT INFORMATION
  Report Type: Spontaneous
  Country: BE (occurrence: BE)
  Receive Date: 20160913
  Receipt Date: 20160913
  Transmission Date: 20161109
  Serious: Yes (Death)
  Sender: FDA-Public Use
  Company Number: BE-MALLINCKRODT-T201604286

PATIENT
  Age: 64 Year
  Sex: Female
  Weight: 42 kg

DRUGS (24)
  1. UVADEX [Suspect]
     Active Substance: METHOXSALEN
     Indication: ACUTE GRAFT VERSUS HOST DISEASE
     Dosage: UNK
     Dates: start: 20160810, end: 20160810
  2. UVADEX [Suspect]
     Active Substance: METHOXSALEN
     Dosage: UNK
     Dates: start: 20160824, end: 20160824
  3. CARVEDILOL EG [Concomitant]
     Dosage: 0.5MG 2X/DAY
     Route: 048
  4. ZOVIRAX [Concomitant]
     Active Substance: ACYCLOVIR
     Dosage: 800 MG AT 08:00
     Route: 048
  5. ASAFLOW [Concomitant]
     Active Substance: ASPIRIN
     Dosage: 80 MG
     Route: 048
  6. GLYCEROL\PARAFFIN [Concomitant]
     Active Substance: GLYCERIN\PARAFFIN
     Dosage: 250G, TWICE/DAY
     Route: 061
  7. PANTOMED [Concomitant]
     Active Substance: DEXPANTHENOL
     Dosage: 40 MG AT 08:00
     Route: 048
  8. ANTICOAGULANT CITRATE DEXTROSE SOLUTION (ACD) NOS [Concomitant]
     Active Substance: CITRIC ACID MONOHYDRATE\DEXTROSE\SODIUM CITRATE
     Indication: ANTICOAGULANT THERAPY
     Dosage: UNKNOWN
     Dates: start: 20160825, end: 20160825
  9. CHOLECALCIFEROL [Concomitant]
     Active Substance: CHOLECALCIFEROL
     Dosage: 25000 IU/1ML AMPOULE
     Route: 048
  10. EPADERM [Concomitant]
     Active Substance: MINERAL OIL\PETROLATUM\WAX, EMULSIFYING
     Dosage: 500 G/2X/DAY
  11. PLAVIX [Concomitant]
     Active Substance: CLOPIDOGREL BISULFATE
     Dosage: 75MG, 1X DAILY
     Route: 048
  12. AZITHROMYCIN ANHYDROUS. [Concomitant]
     Active Substance: AZITHROMYCIN ANHYDROUS
     Dosage: 250 MG, UNK
     Route: 048
     Dates: start: 20160715
  13. UVADEX [Suspect]
     Active Substance: METHOXSALEN
     Dosage: UNK
     Dates: start: 20160825, end: 20160825
  14. CARVEDILOL EG [Concomitant]
     Dosage: 6.25 MG, 2X/DAY
     Route: 048
  15. RELVAR [Concomitant]
     Active Substance: FLUTICASONE FUROATE\VILANTEROL TRIFENATATE
     Dosage: 92MCG+22MCG/ 1X DAILY
  16. UVADEX [Suspect]
     Active Substance: METHOXSALEN
     Dosage: UNK
     Dates: start: 201608, end: 201608
  17. LIPITOR [Concomitant]
     Active Substance: ATORVASTATIN CALCIUM
     Dosage: 80 MG, 1X DAILY
     Route: 048
  18. VFEND [Concomitant]
     Active Substance: VORICONAZOLE
     Dosage: 200MG AT 10:00 AND 22:00
     Route: 048
  19. CELLCEPT [Concomitant]
     Active Substance: MYCOPHENOLATE MOFETIL\MYCOPHENOLATE MOFETIL HYDROCHLORIDE
     Dosage: 500MG AT 08:00 AND 20:00
     Route: 048
  20. DUOVENT HFA [Concomitant]
     Dosage: 1 PUFF QID (08:00, 12:00, 16:00, 20:00)
  21. EUSAPRIM [Concomitant]
     Dosage: DI-8:00-17:00 DO-8:00-17:00
     Route: 048
  22. LISINOPRIL. [Concomitant]
     Active Substance: LISINOPRIL
     Dosage: 2.5 MG, 1X DAILY
     Route: 048
  23. PREDNISOLONE. [Concomitant]
     Active Substance: PREDNISOLONE
     Dosage: 20 MG, 1XDAILY
     Route: 048
  24. QVAR [Concomitant]
     Active Substance: BECLOMETHASONE DIPROPIONATE
     Dosage: 2 PUFFS  2X DAILY

REACTIONS (2)
  - Cardiac death [Fatal]
  - Embolism [Fatal]

NARRATIVE: CASE EVENT DATE: 20160826
